FAERS Safety Report 7988857-9 (Version None)
Quarter: 2011Q4

REPORT INFORMATION
  Report Type: 
  Country: None (occurrence: None)
  Receive Date: 20111219
  Receipt Date: 20111206
  Transmission Date: 20120403
  Serious: Yes (Other)
  Sender: FDA-Public Use
  Company Number: US-RANBAXY-2011RR-51082

PATIENT
  Sex: Male

DRUGS (15)
  1. LEVAQUIN [Suspect]
     Dosage: UNK
     Dates: start: 20070210
  2. LEVAQUIN [Suspect]
     Dosage: UNK
     Dates: start: 20070802
  3. LEVAQUIN [Suspect]
     Indication: UPPER RESPIRATORY TRACT INFECTION
     Dosage: 500 MG, QD
     Route: 048
     Dates: start: 20050220
  4. LEVAQUIN [Suspect]
     Dosage: UNK
     Route: 048
     Dates: start: 20070124
  5. LEVAQUIN [Suspect]
     Dosage: UNK
     Dates: start: 20080601
  6. CIPROFLOXACIN [Suspect]
     Indication: PRODUCT USED FOR UNKNOWN INDICATION
     Dosage: UNK
     Route: 065
  7. LEVAQUIN [Suspect]
     Dosage: UNK
     Dates: start: 20080310
  8. LEVAQUIN [Suspect]
     Dosage: UNK
     Dates: start: 20071115
  9. LEVAQUIN [Suspect]
     Dosage: UNK
     Dates: start: 20060611
  10. LEVAQUIN [Suspect]
     Dosage: UNK
     Dates: start: 20080421
  11. LEVAQUIN [Suspect]
     Dosage: UNK
     Dates: start: 20080622
  12. LEVAQUIN [Suspect]
     Indication: POST PROCEDURAL INFECTION
     Dosage: UNK
     Dates: start: 20050626
  13. LEVAQUIN [Suspect]
     Dosage: UNK
     Dates: start: 20060827
  14. LEVAQUIN [Suspect]
     Dosage: UNK
     Dates: start: 20071011
  15. LEVAQUIN [Suspect]
     Dosage: UNK
     Dates: start: 20071226

REACTIONS (4)
  - TENDON RUPTURE [None]
  - TENDONITIS [None]
  - EPICONDYLITIS [None]
  - ROTATOR CUFF SYNDROME [None]
